FAERS Safety Report 8390891-4 (Version None)
Quarter: 2012Q2

REPORT INFORMATION
  Report Type: 
  Country: None (occurrence: None)
  Receive Date: 20120529
  Receipt Date: 20120516
  Transmission Date: 20120825
  Serious: Yes (Life-Threatening, Hospitalization, Disabling)
  Sender: FDA-Public Use
  Company Number: DK-JNJFOC-20100905311

PATIENT
  Sex: Male
  Weight: 70 kg

DRUGS (7)
  1. HUMIRA [Suspect]
     Dates: start: 20110411, end: 20110601
  2. PREDNISOLONE [Concomitant]
     Indication: URTICARIA
     Dates: start: 20051111, end: 20070613
  3. REMICADE [Suspect]
     Route: 042
     Dates: start: 20051125
  4. REMICADE [Suspect]
     Indication: ANKYLOSING SPONDYLITIS
     Route: 042
     Dates: end: 20100311
  5. HUMIRA [Suspect]
     Indication: ANKYLOSING SPONDYLITIS
     Dates: start: 20100909
  6. METHOTREXATE [Suspect]
     Indication: URTICARIA
     Dates: start: 20060501, end: 20080103
  7. METHOTREXATE [Suspect]
     Dates: start: 20050301, end: 20051201

REACTIONS (11)
  - SARCOIDOSIS [None]
  - ASCITES [None]
  - PROSTATE CANCER [None]
  - PNEUMONIA [None]
  - BONE MARROW FAILURE [None]
  - INFECTION [None]
  - BONE MARROW GRANULOMA [None]
  - HEPATIC CIRRHOSIS [None]
  - THROMBOCYTOPENIA [None]
  - VARICES OESOPHAGEAL [None]
  - COUGH [None]
